FAERS Safety Report 7466277-3 (Version None)
Quarter: 2011Q2

REPORT INFORMATION
  Report Type: 
  Country: None (occurrence: None)
  Receive Date: 20110509
  Receipt Date: 20100716
  Transmission Date: 20111010
  Serious: No
  Sender: FDA-Public Use
  Company Number: US-ALEXION-A201000838

PATIENT
  Sex: Female

DRUGS (7)
  1. SOLIRIS [Suspect]
     Indication: PAROXYSMAL NOCTURNAL HAEMOGLOBINURIA
     Dosage: UNK
     Route: 042
     Dates: start: 20070801
  2. BENADRYL [Suspect]
     Dosage: UNK
  3. PUMP [Concomitant]
     Indication: ASTHMA
     Dosage: UNK
  4. DEPO-PROVERA [Suspect]
  5. ANTI-THYMOCYTE GLOBULIN RABBIT NOS [Suspect]
     Indication: APLASTIC ANAEMIA
  6. CYCLOSPORINE [Suspect]
     Indication: APLASTIC ANAEMIA
  7. PREDNISONE [Concomitant]

REACTIONS (6)
  - DYSPHAGIA [None]
  - SOMNOLENCE [None]
  - FATIGUE [None]
  - DECREASED APPETITE [None]
  - VAGINAL HAEMORRHAGE [None]
  - HEADACHE [None]
